FAERS Safety Report 12450286 (Version 1)
Quarter: 2016Q2

REPORT INFORMATION
  Report Type: Spontaneous
  Country: US (occurrence: US)
  Receive Date: 20160609
  Receipt Date: 20160609
  Transmission Date: 20160815
  Serious: No
  Sender: FDA-Public Use
  Company Number: US-PFIZER INC-2016270977

PATIENT
  Sex: Male

DRUGS (1)
  1. SUTENT [Suspect]
     Active Substance: SUNITINIB MALATE
     Indication: RENAL CANCER METASTATIC
     Dosage: UNK, CYCLIC (2 WEEKS ON/1 WEEK OFF)
     Dates: start: 20160131

REACTIONS (3)
  - Decreased appetite [Unknown]
  - Pain in extremity [Unknown]
  - Erythema [Unknown]
